FAERS Safety Report 21615067 (Version 2)
Quarter: 2022Q4

REPORT INFORMATION
  Report Type: Spontaneous
  Country: US (occurrence: US)
  Receive Date: 20221118
  Receipt Date: 20221222
  Transmission Date: 20230112
  Serious: No
  Sender: FDA-Public Use
  Company Number: US-BAUSCH-BL-2022-025470

PATIENT
  Age: 66 Year
  Sex: Female
  Weight: 62.198 kg

DRUGS (3)
  1. CROMOLYN SODIUM [Suspect]
     Active Substance: CROMOLYN SODIUM
     Indication: Hypersensitivity
     Dosage: TWO TO THREE DAYS FOR THE WHOLE WEEK AND ONE TIME DURING ONE DAY
     Route: 045
  2. CLARITIN [Concomitant]
     Active Substance: LORATADINE
     Indication: Hypersensitivity
  3. SPIRIVA [Concomitant]
     Active Substance: TIOTROPIUM BROMIDE MONOHYDRATE
     Indication: Chronic obstructive pulmonary disease

REACTIONS (1)
  - Epistaxis [Unknown]
